FAERS Safety Report 10086158 (Version 1)
Quarter: 2014Q2

REPORT INFORMATION
  Report Type: Spontaneous
  Country: US (occurrence: None)
  Receive Date: 20140417
  Receipt Date: 20140417
  Transmission Date: 20141212
  Serious: Yes (Death)
  Sender: FDA-Public Use
  Company Number: None

PATIENT
  Age: 63 Year
  Sex: Female
  Weight: 73.3 kg

DRUGS (1)
  1. 5-FLUOROURACIL (5-FU) [Suspect]

REACTIONS (3)
  - Cardiac failure [None]
  - Acute coronary syndrome [None]
  - Haemorrhage coronary artery [None]
